FAERS Safety Report 4515634-3 (Version None)
Quarter: 2004Q4

REPORT INFORMATION
  Report Type: 
  Country: None (occurrence: None)
  Receive Date: 20041126
  Receipt Date: 20041115
  Transmission Date: 20050328
  Serious: Yes (Hospitalization)
  Sender: FDA-Public Use
  Company Number: 2004092477

PATIENT
  Age: 35 Year
  Sex: Male

DRUGS (1)
  1. TAHOR (ATORVASTATIN) [Suspect]
     Indication: HYPERCHOLESTEROLAEMIA
     Dosage: 20 MG (1 IN 1 D), ORAL
     Route: 048
     Dates: start: 20040813, end: 20040919

REACTIONS (5)
  - CREATINE PHOSPHOKINASE DECREASED [None]
  - ECCHYMOSIS [None]
  - ERYTHEMA [None]
  - PAIN IN EXTREMITY [None]
  - PURPURA [None]
